FAERS Safety Report 25401670 (Version 1)
Quarter: 2025Q2

REPORT INFORMATION
  Report Type: Report from Study
  Country: US (occurrence: US)
  Receive Date: 20250605
  Receipt Date: 20250605
  Transmission Date: 20250716
  Serious: Yes (Other)
  Sender: TAKEDA
  Company Number: US-TAKEDA-2025TUS041355

PATIENT
  Sex: Male
  Weight: 101 kg

DRUGS (1)
  1. FRUQUINTINIB [Suspect]
     Active Substance: FRUQUINTINIB
     Indication: Colon cancer

REACTIONS (4)
  - Nephrolithiasis [Unknown]
  - Vomiting [Unknown]
  - Fatigue [Unknown]
  - Decreased appetite [Unknown]
